FAERS Safety Report 6812777-6 (Version None)
Quarter: 2010Q3

REPORT INFORMATION
  Report Type: 
  Country: None (occurrence: None)
  Receive Date: 20100701
  Receipt Date: 20100628
  Transmission Date: 20110219
  Serious: Yes (Hospitalization)
  Sender: FDA-Public Use
  Company Number: B0657739A

PATIENT
  Sex: Female

DRUGS (18)
  1. AUGMENTIN '125' [Suspect]
     Indication: PROPHYLAXIS
     Dosage: 3G PER DAY
     Route: 042
     Dates: start: 20100420, end: 20100420
  2. ULTIVA [Suspect]
     Route: 042
     Dates: start: 20100420, end: 20100420
  3. ATRACURIUM [Suspect]
     Route: 042
     Dates: start: 20100420, end: 20100420
  4. PROPOFOL [Suspect]
     Route: 042
     Dates: start: 20100420, end: 20100420
  5. NORMACOL [Suspect]
     Indication: PREMEDICATION
     Route: 054
     Dates: start: 20100419, end: 20100419
  6. BETADINE [Suspect]
     Indication: PREOPERATIVE CARE
     Route: 061
     Dates: start: 20100419, end: 20100420
  7. NEURONTIN [Suspect]
     Indication: PREMEDICATION
     Route: 048
     Dates: start: 20100419, end: 20100420
  8. KETAMINE [Suspect]
     Route: 042
     Dates: start: 20100420, end: 20100420
  9. NAROPIN [Suspect]
     Route: 026
     Dates: start: 20100420, end: 20100420
  10. LOVENOX [Suspect]
     Indication: PREMEDICATION
     Dosage: .4ML PER DAY
     Route: 058
     Dates: start: 20100419, end: 20100420
  11. CALCIUM CHLORIDE [Suspect]
     Dosage: 2G PER DAY
     Route: 065
     Dates: start: 20100420, end: 20100420
  12. GENTAMICIN [Suspect]
     Indication: PRODUCT USED FOR UNKNOWN INDICATION
     Dosage: 240MG PER DAY
     Route: 042
     Dates: start: 20100420, end: 20100420
  13. BETADINE [Suspect]
     Route: 067
     Dates: start: 20100420, end: 20100420
  14. COTAREG [Concomitant]
     Route: 065
  15. LEVOTHYROXINE SODIUM [Concomitant]
     Route: 065
  16. OPHTIM [Concomitant]
     Route: 065
  17. RINGER'S [Concomitant]
     Route: 065
     Dates: start: 20100420
  18. PHYSIOLOGICAL SERUM [Concomitant]
     Route: 065
     Dates: start: 20100420

REACTIONS (7)
  - CONDITION AGGRAVATED [None]
  - HAEMATURIA [None]
  - LYMPHOPENIA [None]
  - NEPHROLITHIASIS [None]
  - OLIGURIA [None]
  - PRODUCT QUALITY ISSUE [None]
  - RENAL FAILURE ACUTE [None]
